FAERS Safety Report 18763018 (Version 1)
Quarter: 2021Q1

REPORT INFORMATION
  Report Type: Spontaneous
  Country: US (occurrence: US)
  Receive Date: 20210120
  Receipt Date: 20210120
  Transmission Date: 20210419
  Serious: Yes (Other)
  Sender: FDA-Public Use
  Company Number: None

PATIENT
  Age: 66 Year
  Sex: Male
  Weight: 81 kg

DRUGS (2)
  1. BISOPROLOL 5MG?HCTZ 6.25 MG [Concomitant]
  2. CHANTIX [Suspect]
     Active Substance: VARENICLINE TARTRATE
     Indication: TOBACCO ABUSE
     Route: 048
     Dates: start: 20201028, end: 20210106

REACTIONS (1)
  - Anger [None]

NARRATIVE: CASE EVENT DATE: 20210106
